FAERS Safety Report 7051006-8 (Version None)
Quarter: 2010Q4

REPORT INFORMATION
  Report Type: 
  Country: None (occurrence: None)
  Receive Date: 20101019
  Receipt Date: 20101006
  Transmission Date: 20110411
  Serious: Yes (Hospitalization, Other)
  Sender: FDA-Public Use
  Company Number: GB-ELI_LILLY_AND_COMPANY-GB201010001814

PATIENT
  Age: 63 Year
  Sex: Male

DRUGS (10)
  1. EXENATIDE [Suspect]
     Indication: DIABETES MELLITUS
     Dosage: 5 UG, 2/D
     Route: 065
  2. EXENATIDE [Suspect]
     Dosage: 10 UG, 2/D
     Route: 065
  3. LEVEMIR [Concomitant]
     Indication: DIABETES MELLITUS
     Dosage: 100 U, DAILY (1/D)
     Route: 065
  4. METFORMIN HCL [Concomitant]
     Indication: DIABETES MELLITUS
     Dosage: 1 G, 3/D
     Route: 065
  5. GLICLAZIDE [Concomitant]
     Indication: DIABETES MELLITUS
     Dosage: 160 MG, DAILY (1/D)
     Route: 065
  6. FRUSEMIDE [Concomitant]
     Dosage: 40 MG, DAILY (1/D)
     Route: 065
  7. AMLODIPINE [Concomitant]
     Dosage: 10 MG, DAILY (1/D)
     Route: 065
  8. RAMIPRIL [Concomitant]
     Dosage: 7.5 MG, DAILY (1/D)
     Route: 065
  9. IRBESARTAN [Concomitant]
     Dosage: 150 MG, DAILY (1/D)
     Route: 065
  10. ATENOLOL [Concomitant]
     Dosage: UNK, UNKNOWN
     Route: 065

REACTIONS (5)
  - DEHYDRATION [None]
  - NAUSEA [None]
  - RENAL IMPAIRMENT [None]
  - VOMITING [None]
  - WEIGHT DECREASED [None]
